FAERS Safety Report 8548368-9 (Version None)
Quarter: 2012Q3

REPORT INFORMATION
  Report Type: 
  Country: None (occurrence: None)
  Receive Date: 20120730
  Receipt Date: 20120720
  Transmission Date: 20120928
  Serious: Yes (Hospitalization)
  Sender: FDA-Public Use
  Company Number: JP-JNJFOC-20100608450

PATIENT
  Sex: Female
  Weight: 65 kg

DRUGS (20)
  1. DOXORUBICIN HYDROCHLORIDE [Suspect]
     Indication: OVARIAN EPITHELIAL CANCER
     Route: 042
     Dates: start: 20100420, end: 20100420
  2. SEROTONE [Concomitant]
     Indication: PROPHYLAXIS
     Route: 042
     Dates: start: 20100420, end: 20100420
  3. MUCOSTA [Concomitant]
     Indication: PROPHYLAXIS
     Route: 048
     Dates: start: 20100420, end: 20100619
  4. DECADRON [Concomitant]
     Indication: PROPHYLAXIS
     Route: 042
     Dates: start: 20100420, end: 20100420
  5. ASCORBIC ACID [Concomitant]
     Route: 065
  6. DECADRON [Concomitant]
     Route: 048
     Dates: start: 20100525, end: 20100526
  7. DECADRON [Concomitant]
     Route: 048
     Dates: start: 20100425, end: 20100426
  8. LOXONIN [Concomitant]
     Indication: INTERSTITIAL LUNG DISEASE
     Dosage: AS NEEDED.
     Route: 048
     Dates: start: 20100420
  9. CINAL [Concomitant]
     Indication: PIGMENTATION DISORDER
     Route: 048
     Dates: start: 20100526
  10. PYDOXAL [Concomitant]
     Indication: STOMATITIS
     Route: 048
     Dates: start: 20100507, end: 20100619
  11. KERATINAMIN [Concomitant]
     Indication: PIGMENTATION DISORDER
     Route: 061
     Dates: start: 20100526
  12. BROTIZOLAM [Concomitant]
     Route: 065
  13. DECADRON [Concomitant]
     Route: 042
     Dates: start: 20100520, end: 20100520
  14. AZUNOL [Concomitant]
     Indication: STOMATITIS
     Route: 048
     Dates: start: 20100507, end: 20100603
  15. DOXORUBICIN HYDROCHLORIDE [Suspect]
     Route: 042
     Dates: start: 20100520, end: 20100520
  16. LOPERAMIDE HYDROCHLORIDE [Concomitant]
     Indication: PROPHYLAXIS
     Route: 048
     Dates: start: 20100421
  17. FOIPAN [Concomitant]
     Indication: STOMATITIS
     Route: 002
     Dates: start: 20100507
  18. SEROTONE [Concomitant]
     Route: 042
     Dates: start: 20100520, end: 20100520
  19. DECADRON [Concomitant]
     Route: 048
     Dates: start: 20100420, end: 20100424
  20. DECADRON [Concomitant]
     Route: 048
     Dates: start: 20100520, end: 20100524

REACTIONS (1)
  - INTERSTITIAL LUNG DISEASE [None]
